FAERS Safety Report 8171194-X (Version None)
Quarter: 2012Q1

REPORT INFORMATION
  Report Type: 
  Country: None (occurrence: None)
  Receive Date: 20120228
  Receipt Date: 20111222
  Transmission Date: 20120608
  Serious: No
  Sender: FDA-Public Use
  Company Number: US-BRISTOL-MYERS SQUIBB COMPANY-16296220

PATIENT
  Age: 75 Year
  Sex: Female
  Weight: 85 kg

DRUGS (7)
  1. METFORMIN HCL [Concomitant]
  2. LOSARTAN POTASSIUM [Concomitant]
  3. SIMVASTATIN [Concomitant]
  4. GABAPENTIN [Concomitant]
  5. ONGLYZA [Suspect]
     Indication: TYPE 2 DIABETES MELLITUS
  6. ATENOLOL [Concomitant]
  7. GLIMEPIRIDE [Concomitant]

REACTIONS (1)
  - LABORATORY TEST ABNORMAL [None]
